FAERS Safety Report 25681123 (Version 1)
Quarter: 2025Q3

REPORT INFORMATION
  Report Type: Spontaneous
  Country: EU (occurrence: EU)
  Receive Date: 20250814
  Receipt Date: 20250814
  Transmission Date: 20251021
  Serious: Yes (Other)
  Sender: AMGEN
  Company Number: EU-PFIZER INC-PV202500092010

PATIENT
  Age: 63 Year
  Sex: Female

DRUGS (7)
  1. XGEVA [Suspect]
     Active Substance: DENOSUMAB
     Indication: Product used for unknown indication
     Dosage: 120 MILLIGRAM, Q4WK CYCLIC (EVERY 28 DAYS)
     Route: 065
     Dates: end: 202407
  2. IBRANCE [Suspect]
     Active Substance: PALBOCICLIB
     Indication: Breast neoplasm
     Route: 065
     Dates: start: 20220519, end: 202407
  3. IBRANCE [Suspect]
     Active Substance: PALBOCICLIB
     Route: 065
     Dates: start: 202407
  4. LETROZOLE [Suspect]
     Active Substance: LETROZOLE
     Indication: Breast neoplasm
     Dosage: 2.5 MILLIGRAM, QD
     Route: 065
     Dates: start: 20220519, end: 202407
  5. LETROZOLE [Suspect]
     Active Substance: LETROZOLE
     Dosage: 2.5 MILLIGRAM, QD
     Route: 065
     Dates: start: 202407
  6. CALCIUM LACTATE [Suspect]
     Active Substance: CALCIUM LACTATE
     Indication: Product used for unknown indication
     Dosage: 500 MILLIGRAM, QD
     Route: 065
  7. VITAMIN D3 [Suspect]
     Active Substance: CHOLECALCIFEROL
     Indication: Product used for unknown indication
     Dosage: 400 INTERNATIONAL UNIT, QD
     Route: 065

REACTIONS (3)
  - Neutropenia [Recovered/Resolved]
  - Leukopenia [Recovered/Resolved]
  - Osteonecrosis of jaw [Unknown]

NARRATIVE: CASE EVENT DATE: 20240701
